FAERS Safety Report 6521852-5 (Version None)
Quarter: 2009Q4

REPORT INFORMATION
  Report Type: 
  Country: None (occurrence: None)
  Receive Date: 20091229
  Receipt Date: 20091229
  Transmission Date: 20100525
  Serious: Yes (Life-Threatening)
  Sender: FDA-Public Use
  Company Number: None

PATIENT
  Age: 30 Year
  Sex: Female
  Weight: 72.6 kg

DRUGS (1)
  1. SERTRALINE HCL [Suspect]
     Indication: BIPOLAR I DISORDER
     Dosage: 50 MG EVERY DAY PO
     Route: 048
     Dates: start: 20081231, end: 20090114

REACTIONS (1)
  - SUICIDAL IDEATION [None]
